FAERS Safety Report 4672390-6 (Version None)
Quarter: 2005Q2

REPORT INFORMATION
  Report Type: 
  Country: None (occurrence: None)
  Receive Date: 20050524
  Receipt Date: 20050517
  Transmission Date: 20051028
  Serious: Yes (Hospitalization)
  Sender: FDA-Public Use
  Company Number: US-BRISTOL-MYERS SQUIBB COMPANY-12970752

PATIENT
  Age: 57 Year
  Sex: Female

DRUGS (14)
  1. ESTRACE [Suspect]
  2. COUMADIN [Suspect]
  3. TIAZAC [Suspect]
  4. NASONEX [Suspect]
  5. AVELOX [Suspect]
     Indication: BRONCHITIS
  6. LIPITOR [Suspect]
  7. NASACORT [Suspect]
  8. NAPROSYN [Suspect]
  9. LASIX [Suspect]
  10. TOPROL-XL [Suspect]
  11. LISINOPRIL [Suspect]
  12. PREDNISONE [Suspect]
  13. HUMIBID L.A. [Suspect]
  14. COMBIVENT [Suspect]

REACTIONS (2)
  - ABDOMINAL HAEMATOMA [None]
  - BRONCHITIS [None]
